FAERS Safety Report 6166564-5 (Version None)
Quarter: 2009Q2

REPORT INFORMATION
  Report Type: 
  Country: None (occurrence: None)
  Receive Date: 20090422
  Receipt Date: 20090422
  Transmission Date: 20091009
  Serious: Yes (Life-Threatening)
  Sender: FDA-Public Use
  Company Number: None

PATIENT
  Age: 65 Year
  Sex: Female
  Weight: 89.8122 kg

DRUGS (1)
  1. METFORMIN HCL [Suspect]
     Indication: MEDICAL DIET
     Dosage: 500 MG. 2 X DAY
     Dates: start: 20080713, end: 20081024

REACTIONS (11)
  - ACTIVITIES OF DAILY LIVING IMPAIRED [None]
  - CORONARY ARTERY OCCLUSION [None]
  - FALL [None]
  - INJURY [None]
  - LETHARGY [None]
  - LOSS OF CONSCIOUSNESS [None]
  - PRODUCT FORMULATION ISSUE [None]
  - PRODUCT QUALITY ISSUE [None]
  - STUPOR [None]
  - VENTRICULAR TACHYCARDIA [None]
  - VISUAL IMPAIRMENT [None]
